FAERS Safety Report 10667680 (Version 2)
Quarter: 2014Q4

REPORT INFORMATION
  Report Type: Spontaneous
  Country: IT (occurrence: IT)
  Receive Date: 20141222
  Receipt Date: 20141229
  Transmission Date: 20150529
  Serious: Yes (Hospitalization)
  Sender: FDA-Public Use
  Company Number: IT-TEVA-529321ISR

PATIENT
  Age: 57 Year
  Sex: Female
  Weight: 41 kg

DRUGS (3)
  1. FLUOROURACILE TEVA [Suspect]
     Active Substance: FLUOROURACIL
     Indication: COLON CANCER
     Route: 042
     Dates: start: 20141022, end: 20141205
  2. ZALTRAP [Suspect]
     Active Substance: ZIV-AFLIBERCEPT
     Indication: COLON CANCER
     Route: 042
     Dates: start: 20141022, end: 20141205
  3. IRINOTECAN MYLAN GENERICS [Concomitant]
     Indication: COLON CANCER
     Route: 042
     Dates: start: 20141022, end: 20141205

REACTIONS (3)
  - Tachycardia [Recovering/Resolving]
  - Cardiac failure [Recovering/Resolving]
  - Dyspnoea [Recovering/Resolving]

NARRATIVE: CASE EVENT DATE: 20141205
